FAERS Safety Report 4875928-9 (Version None)
Quarter: 2006Q1

REPORT INFORMATION
  Report Type: 
  Country: None (occurrence: None)
  Receive Date: 20060106
  Receipt Date: 20051227
  Transmission Date: 20060701
  Serious: Yes (Hospitalization)
  Sender: FDA-Public Use
  Company Number: 2005BI015049

PATIENT
  Age: 57 Year
  Sex: Female

DRUGS (11)
  1. AVONEX [Suspect]
     Indication: MULTIPLE SCLEROSIS
     Dosage: 30 UG; QW; IM
     Route: 030
  2. TRAMADOL HCL [Concomitant]
  3. NORCO [Concomitant]
  4. PAXIL [Concomitant]
  5. NORTRIPTYLINE HCL [Concomitant]
  6. TRILEPTAL [Concomitant]
  7. CALCIUM GLUCONATE [Concomitant]
  8. SENNA [Concomitant]
  9. SYNTHROID [Concomitant]
  10. DICLOFENAC [Concomitant]
  11. 4-AMINOPYRIDINE [Concomitant]

REACTIONS (5)
  - INTERVERTEBRAL DISC PROTRUSION [None]
  - LUMBAR SPINAL STENOSIS [None]
  - METASTASES TO LYMPH NODES [None]
  - PAPILLARY THYROID CANCER [None]
  - SPONDYLOLISTHESIS [None]
